FAERS Safety Report 6331408-5 (Version None)
Quarter: 2009Q3

REPORT INFORMATION
  Report Type: 
  Country: None (occurrence: None)
  Receive Date: 20090827
  Receipt Date: 20090817
  Transmission Date: 20100115
  Serious: Yes (Life-Threatening, Hospitalization, Other)
  Sender: FDA-Public Use
  Company Number: AU-ROCHE-544050

PATIENT
  Age: 43 Year
  Sex: Male

DRUGS (15)
  1. PEG-INTERFERON A-2A (RO 25-8310) [Suspect]
     Dosage: FREQUENCY REPORTED AS PER WEEK
     Route: 065
     Dates: start: 20060401, end: 20060726
  2. RIBAVIRIN [Suspect]
     Route: 065
     Dates: start: 20060401, end: 20060726
  3. MYCOPHENOLATE MOFETIL [Suspect]
     Indication: DRUG USE FOR UNKNOWN INDICATION
     Route: 065
  4. PREDNISONE TAB [Suspect]
     Indication: DRUG USE FOR UNKNOWN INDICATION
     Route: 065
  5. PREDNISONE TAB [Suspect]
     Dosage: GRADUALLY TAPERED TO 15 MG DAILY
     Route: 065
  6. PREDNISONE TAB [Suspect]
     Route: 065
  7. PREDNISONE TAB [Suspect]
     Route: 065
  8. PREDNISONE TAB [Suspect]
     Dosage: DOSE QUICKLY TAPERED
     Route: 065
  9. PREDNISONE TAB [Suspect]
     Dosage: PULSED DOSE
     Route: 065
  10. PREDNISONE TAB [Suspect]
     Dosage: MAINTENANCE REGIMEN
     Route: 065
  11. CYCLOPHOSPHAMIDE [Suspect]
     Indication: LUPUS NEPHRITIS
     Route: 042
  12. CYCLOPHOSPHAMIDE [Suspect]
     Dosage: PULSED DOSE
     Route: 042
     Dates: start: 20060904
  13. CYCLOPHOSPHAMIDE [Suspect]
     Dosage: INTRAVENOUS PULSE INDUCTION THERAPY
     Route: 042
  14. METHYLPREDNISOLONE [Suspect]
     Indication: LUPUS NEPHRITIS
     Dosage: PULSED THERAPY
     Route: 042
  15. HYDROXYCHLOROQUINE SULFATE [Suspect]
     Route: 065

REACTIONS (5)
  - DILATATION VENTRICULAR [None]
  - HEPATITIS C VIRUS TEST [None]
  - PULMONARY HYPERTENSION [None]
  - STREPTOCOCCAL INFECTION [None]
  - SYSTEMIC LUPUS ERYTHEMATOSUS [None]
